FAERS Safety Report 6071359-7 (Version None)
Quarter: 2009Q1

REPORT INFORMATION
  Report Type: 
  Country: None (occurrence: None)
  Receive Date: 20090204
  Receipt Date: 20090120
  Transmission Date: 20090719
  Serious: Yes (Death)
  Sender: FDA-Public Use
  Company Number: AE2009-010

PATIENT
  Age: 47 Year
  Sex: Male

DRUGS (10)
  1. FAZACLO ODT [Suspect]
     Indication: ATTENTION DEFICIT/HYPERACTIVITY DISORDER
     Dosage: 300 MG DAILY PO
     Route: 048
     Dates: start: 20080418, end: 20090115
  2. FAZACLO ODT [Suspect]
     Indication: SCHIZOPHRENIA, PARANOID TYPE
     Dosage: 300 MG DAILY PO
     Route: 048
     Dates: start: 20080418, end: 20090115
  3. ABILIFY [Concomitant]
  4. TRAZODONE HCL [Concomitant]
  5. LAMICTAL [Concomitant]
  6. CELEXA [Concomitant]
  7. ADDERALL XR 20 [Concomitant]
  8. CONCERTA [Concomitant]
  9. ALPRAZOLAM [Concomitant]
  10. ZOMIG [Concomitant]

REACTIONS (1)
  - DEATH [None]
